FAERS Safety Report 17214983 (Version 2)
Quarter: 2020Q1

REPORT INFORMATION
  Report Type: Report from Study
  Country: CO (occurrence: CO)
  Receive Date: 20191230
  Receipt Date: 20200102
  Transmission Date: 20200409
  Serious: Yes (Hospitalization)
  Sender: FDA-Public Use
  Company Number: NVSC2019CO060549

PATIENT
  Sex: Female
  Weight: 81 kg

DRUGS (1)
  1. RYDAPT [Suspect]
     Active Substance: MIDOSTAURIN
     Indication: ACUTE MYELOID LEUKAEMIA
     Dosage: 50 MG, QD
     Route: 048
     Dates: start: 20190703

REACTIONS (7)
  - Respiratory tract infection fungal [Unknown]
  - Inappropriate schedule of product administration [Unknown]
  - Infection [Unknown]
  - Urinary tract infection [Unknown]
  - Cellulitis [Unknown]
  - Sepsis [Unknown]
  - Platelet count decreased [Unknown]
